FAERS Safety Report 25293715 (Version 3)
Quarter: 2025Q4

REPORT INFORMATION
  Report Type: Spontaneous
  Country: US (occurrence: US)
  Receive Date: 20250510
  Receipt Date: 20251001
  Transmission Date: 20260117
  Serious: No
  Sender: SANOFI AVENTIS
  Company Number: US-SA-2025SA128104

PATIENT
  Age: 64 Year
  Sex: Female

DRUGS (2)
  1. DUPIXENT [Suspect]
     Active Substance: DUPILUMAB
     Indication: Asthma
     Dosage: 400 MG, 1X
     Route: 058
     Dates: start: 20250116, end: 20250116
  2. DUPIXENT [Suspect]
     Active Substance: DUPILUMAB
     Dosage: 200 MG, QOW
     Route: 058
     Dates: start: 20250131

REACTIONS (8)
  - Dyspnoea [Unknown]
  - Abdominal pain [Unknown]
  - Abdominal hernia repair [Recovering/Resolving]
  - Inguinal hernia [Recovering/Resolving]
  - Upper-airway cough syndrome [Recovering/Resolving]
  - Cough [Recovering/Resolving]
  - Dysphonia [Not Recovered/Not Resolved]
  - Dry throat [Not Recovered/Not Resolved]

NARRATIVE: CASE EVENT DATE: 20250101
